FAERS Safety Report 19935972 (Version 2)
Quarter: 2021Q4

REPORT INFORMATION
  Report Type: Spontaneous
  Country: JP (occurrence: JP)
  Receive Date: 20211008
  Receipt Date: 20211013
  Transmission Date: 20220303
  Serious: Yes (Hospitalization, Other)
  Sender: FDA-Public Use
  Company Number: JP-TAKEDA-2021TUS050090

PATIENT
  Age: 9 Year
  Sex: Male

DRUGS (5)
  1. VYVANSE [Suspect]
     Active Substance: LISDEXAMFETAMINE DIMESYLATE
     Indication: Attention deficit hyperactivity disorder
     Dosage: 30 MILLIGRAM, QD
     Route: 048
     Dates: start: 20210805, end: 20210805
  2. INTUNIV [Suspect]
     Active Substance: GUANFACINE HYDROCHLORIDE
     Indication: Attention deficit hyperactivity disorder
     Dosage: 3 GRAM, QD
     Route: 065
     Dates: start: 20180918
  3. ABILIFY [Concomitant]
     Active Substance: ARIPIPRAZOLE
     Indication: Autism spectrum disorder
     Dosage: 5 MILLILITER, QD
     Route: 048
     Dates: start: 20180906
  4. ROZEREM [Concomitant]
     Active Substance: RAMELTEON
     Indication: Insomnia
     Dosage: 4 MILLIGRAM, QD
     Route: 065
     Dates: start: 20190903
  5. DIETARY SUPPLEMENT\PROBIOTICS [Concomitant]
     Active Substance: DIETARY SUPPLEMENT\PROBIOTICS
     Indication: Constipation
     Dosage: 1 GRAM, QD
     Route: 048
     Dates: start: 20210419

REACTIONS (5)
  - Epilepsy [Recovering/Resolving]
  - Nervousness [Recovered/Resolved]
  - Acetonaemic vomiting [Recovered/Resolved]
  - Tachycardia [Recovered/Resolved]
  - Insomnia [Recovering/Resolving]

NARRATIVE: CASE EVENT DATE: 20210805
